FAERS Safety Report 16361881 (Version 8)
Quarter: 2020Q1

REPORT INFORMATION
  Report Type: Spontaneous
  Country: US (occurrence: US)
  Receive Date: 20190528
  Receipt Date: 20200316
  Transmission Date: 20200409
  Serious: Yes (Other)
  Sender: FDA-Public Use
  Company Number: US-PFIZER INC-2019225187

PATIENT
  Age: 48 Year
  Sex: Female

DRUGS (40)
  1. DILANTIN [Suspect]
     Active Substance: PHENYTOIN
     Dosage: 300 MG, 1X/DAY (100 MG, 3 CAPS EVERY NIGHT AT BEDTIME)
     Route: 048
  2. DILANTIN [Suspect]
     Active Substance: PHENYTOIN
     Dosage: 1 DF, UNK (30 QTY, AT NIGHT)
  3. METFORMIN [Concomitant]
     Active Substance: METFORMIN HYDROCHLORIDE
     Dosage: 500 MG, 2X/DAY
     Route: 048
     Dates: start: 20170508, end: 20170810
  4. LANTUS [Concomitant]
     Active Substance: INSULIN GLARGINE
     Dosage: 10 IU, DAILY (QHS)
     Route: 058
  5. SYNTHROID [Concomitant]
     Active Substance: LEVOTHYROXINE SODIUM
     Dosage: 1 DF, DAILY (100 MCG, BEFORE BREAKFAST)
     Route: 048
     Dates: start: 20160628, end: 20161205
  6. LISINOPRIL. [Concomitant]
     Active Substance: LISINOPRIL
     Dosage: 10 MG, DAILY
     Route: 048
     Dates: start: 20160628, end: 20160727
  7. LISINOPRIL. [Concomitant]
     Active Substance: LISINOPRIL
     Dosage: 20 MG, DAILY
     Route: 048
     Dates: start: 20160727
  8. DILANTIN [Suspect]
     Active Substance: PHENYTOIN
     Dosage: 200 MG, 3X/DAY (100 MG TWO CAPSULES ORALLY THREE TIMES DAILY)
     Route: 048
     Dates: start: 20110728
  9. DILANTIN [Suspect]
     Active Substance: PHENYTOIN
     Dosage: 1 DF, 3X/DAY
     Route: 048
     Dates: start: 20160628
  10. CRESTOR [Concomitant]
     Active Substance: ROSUVASTATIN CALCIUM
     Dosage: 10 MG, DAILY (EVERY NIGHT AT BED TIME)
     Dates: start: 20170508, end: 20170810
  11. ATIVAN [Concomitant]
     Active Substance: LORAZEPAM
     Indication: SEIZURE
     Dosage: 2 MG, UNK
     Route: 042
  12. LISINOPRIL/HCTZ [Concomitant]
     Active Substance: HYDROCHLOROTHIAZIDE\LISINOPRIL
     Dosage: UNK, DAILY (20/12.5 MG Q.AM)
  13. PRINIVIL [Concomitant]
     Active Substance: LISINOPRIL
     Dosage: 20 MG, 1X/DAY
     Route: 048
     Dates: start: 20170508, end: 20171109
  14. ZOLOFT [Concomitant]
     Active Substance: SERTRALINE HYDROCHLORIDE
     Dosage: 100 MG, DAILY
     Route: 048
  15. SIMVASTATIN. [Concomitant]
     Active Substance: SIMVASTATIN
     Dosage: 1 DF, DAILY (IN THE EVENING)
     Route: 048
     Dates: start: 20160727
  16. DILANTIN [Suspect]
     Active Substance: PHENYTOIN
     Dosage: 100 MG, UNK (90 QTY)
  17. LANTUS [Concomitant]
     Active Substance: INSULIN GLARGINE
     Dosage: UNK, DAILY (100 IU/ML, DAILY, EVERY EVENING)
     Route: 058
     Dates: start: 20130624, end: 20170810
  18. ASPIRIN LOW DOSE [Concomitant]
     Active Substance: ASPIRIN
     Dosage: 81 MG, 1X/DAY
     Route: 048
     Dates: start: 20130824
  19. ZOLPIDEM TARTRATE. [Concomitant]
     Active Substance: ZOLPIDEM TARTRATE
     Indication: INSOMNIA
     Dosage: 10 MG, 1X/DAY, HALF AN HOUR PRIOR TO BED TIME
     Route: 048
  20. CYANOCOBALAMIN. [Concomitant]
     Active Substance: CYANOCOBALAMIN
     Dosage: 1000 MCG/ML
     Route: 042
     Dates: start: 20160921
  21. DILANTIN [Suspect]
     Active Substance: PHENYTOIN
     Indication: SEIZURE
     Dosage: 500 MG, UNK
     Route: 048
  22. DILANTIN [Suspect]
     Active Substance: PHENYTOIN
     Dosage: 200 MG, DAILY
     Route: 048
  23. DILANTIN [Suspect]
     Active Substance: PHENYTOIN
     Dosage: 200 MG, 2X/DAY
     Route: 048
     Dates: start: 20170508, end: 20180207
  24. FENOFIBRATE. [Concomitant]
     Active Substance: FENOFIBRATE
     Dosage: 54 MG, 1X/DAY
  25. LORAZEPAM. [Concomitant]
     Active Substance: LORAZEPAM
     Dosage: 0.5 MG, UNK
     Route: 048
  26. DILANTIN [Suspect]
     Active Substance: PHENYTOIN
     Indication: SEIZURE
     Dosage: 500 MG, UNK
     Route: 042
  27. DILANTIN [Suspect]
     Active Substance: PHENYTOIN
     Indication: SEIZURE
     Dosage: 500 MG, SINGLE
     Route: 048
     Dates: start: 20080806
  28. DILANTIN [Suspect]
     Active Substance: PHENYTOIN
     Dosage: 100 MG, 3X/DAY
     Route: 048
     Dates: start: 20130625, end: 20170508
  29. ZOCOR [Concomitant]
     Active Substance: SIMVASTATIN
     Dosage: 20 MG, DAILY (EVERY NIGHT AT BED TIME)
     Dates: end: 20170508
  30. ASPIRIN LOW DOSE [Concomitant]
     Active Substance: ASPIRIN
     Dosage: 1 DF, DAILY
     Route: 048
     Dates: start: 20160628
  31. ALEVE PM [Concomitant]
     Active Substance: DIPHENHYDRAMINE HYDROCHLORIDE\NAPROXEN SODIUM
     Dosage: UNK
     Route: 048
     Dates: end: 20171102
  32. PRAVASTATIN. [Concomitant]
     Active Substance: PRAVASTATIN
     Dosage: 40 MG, 1X/DAY
  33. METFORMIN HCL [Concomitant]
     Active Substance: METFORMIN HYDROCHLORIDE
     Dosage: 2 DF, 2X/DAY
     Route: 048
     Dates: start: 20160829
  34. DILANTIN [Suspect]
     Active Substance: PHENYTOIN
     Dosage: 100 MG, 3X/DAY
  35. LANTUS [Concomitant]
     Active Substance: INSULIN GLARGINE
     Dosage: UNK, DAILY (100 UNIT/ML EVERY EVENING)
     Route: 058
     Dates: start: 20160921
  36. ACTOS [Concomitant]
     Active Substance: PIOGLITAZONE HYDROCHLORIDE
     Dosage: 30 MG, UNK
     Route: 048
  37. METFORMIN HCL [Concomitant]
     Active Substance: METFORMIN HYDROCHLORIDE
     Dosage: 2 DF, 2X/DAY (WITH MEALS)
     Route: 048
     Dates: start: 20160705, end: 20160727
  38. VICTOZA [Concomitant]
     Active Substance: LIRAGLUTIDE
     Dosage: UNK, DAILY (18 MG/3ML)
     Route: 058
     Dates: start: 20160727, end: 20160829
  39. JANUVIA [Concomitant]
     Active Substance: SITAGLIPTIN PHOSPHATE
     Dosage: 100 MG, DAILY (Q.AM)
     Route: 048
  40. SYNTHROID [Concomitant]
     Active Substance: LEVOTHYROXINE SODIUM
     Dosage: 112 UG, 1X/DAY
     Route: 048
     Dates: start: 20161205

REACTIONS (21)
  - Cerebellar atrophy [Unknown]
  - Neurodegenerative disorder [Unknown]
  - Loss of consciousness [Unknown]
  - Tremor [Unknown]
  - Somnolence [Unknown]
  - Dizziness [Unknown]
  - Disorientation [Unknown]
  - Headache [Unknown]
  - Neuropathy peripheral [Unknown]
  - Cerebral small vessel ischaemic disease [Unknown]
  - Confusional state [Unknown]
  - Balance disorder [Unknown]
  - Abnormal behaviour [Unknown]
  - Drug hypersensitivity [Unknown]
  - Amnesia [Unknown]
  - Memory impairment [Unknown]
  - Depression [Unknown]
  - Mood swings [Unknown]
  - Vision blurred [Unknown]
  - Insomnia [Unknown]
  - Paraesthesia [Unknown]

NARRATIVE: CASE EVENT DATE: 20101102
